FAERS Safety Report 9229502 (Version 1)
Quarter: 2013Q2

REPORT INFORMATION
  Report Type: Spontaneous
  Country: US (occurrence: US)
  Receive Date: 20130412
  Receipt Date: 20130412
  Transmission Date: 20140414
  Serious: Yes (Hospitalization)
  Sender: FDA-Public Use
  Company Number: US-B.I. PHARMACEUTICALS,INC./RIDGEFIELD-2013-BI-09650GD

PATIENT
  Age: 69 Year
  Sex: Female
  Weight: 135 kg

DRUGS (20)
  1. PRADAXA [Suspect]
     Indication: ATRIAL FIBRILLATION
     Dosage: 150 MG
     Route: 048
     Dates: start: 2007
  2. OMEPRAZOLE [Suspect]
  3. CELECOXIB [Suspect]
  4. DILTIAZEM [Suspect]
  5. DIGOXIN [Suspect]
  6. ASPIRIN [Concomitant]
     Dosage: LOW-DOSE
  7. METOPROLOL TARTRATE [Concomitant]
  8. LISINOPRIL [Concomitant]
  9. FUROSEMIDE [Concomitant]
  10. POTASSIUM CHLORIDE [Concomitant]
  11. METFORMIN [Concomitant]
  12. GLIMEPIRIDE [Concomitant]
  13. INSULIN [Concomitant]
     Indication: TYPE 2 DIABETES MELLITUS
  14. LEVOTHYROXINE [Concomitant]
     Indication: HYPOTHYROIDISM
  15. GEMFIBROZIL [Concomitant]
  16. FISH OIL [Concomitant]
  17. ALBUTEROL [Concomitant]
  18. DULOXETINE [Concomitant]
  19. VITAMIN D3 [Concomitant]
  20. LORAZEPAM [Concomitant]

REACTIONS (3)
  - Pulmonary embolism [Unknown]
  - Drug ineffective [Unknown]
  - Drug interaction [Unknown]
